FAERS Safety Report 6717780-2 (Version None)
Quarter: 2010Q2

REPORT INFORMATION
  Report Type: 
  Country: None (occurrence: None)
  Receive Date: 20100507
  Receipt Date: 20100507
  Transmission Date: 20101027
  Serious: Yes (Hospitalization)
  Sender: FDA-Public Use
  Company Number: None

PATIENT
  Age: 15 Month

DRUGS (2)
  1. COARTEM [Suspect]
     Indication: MALARIA
     Dates: start: 20100306, end: 20100306
  2. AMOXICILLIN AND CLAVULANATE POTASSIUM [Suspect]
     Indication: OTITIS MEDIA
     Dates: start: 20100306, end: 20100306

REACTIONS (3)
  - FEBRILE CONVULSION [None]
  - GRAND MAL CONVULSION [None]
  - RHINORRHOEA [None]
